FAERS Safety Report 21670982 (Version 2)
Quarter: 2023Q2

REPORT INFORMATION
  Report Type: Spontaneous
  Country: US (occurrence: US)
  Receive Date: 20221202
  Receipt Date: 20230403
  Transmission Date: 20230721
  Serious: Yes (Hospitalization, Other)
  Sender: FDA-Public Use
  Company Number: US-MLMSERVICE-20221114-3920547-1

PATIENT
  Age: 40 Year
  Sex: Male

DRUGS (21)
  1. DEXAMETHASONE [Suspect]
     Active Substance: DEXAMETHASONE
     Indication: COVID-19
     Dosage: TAPER
     Route: 065
     Dates: start: 202203
  2. RITONAVIR [Suspect]
     Active Substance: RITONAVIR
     Indication: COVID-19 pneumonia
     Dosage: UNK
     Route: 065
     Dates: start: 2022
  3. RITONAVIR [Suspect]
     Active Substance: RITONAVIR
     Indication: Lower respiratory tract infection viral
  4. PREDNISONE [Suspect]
     Active Substance: PREDNISONE
     Indication: COVID-19
     Dosage: 0.5 MILLIGRAM/KILOGRAM
     Route: 065
     Dates: start: 2022
  5. PREDNISONE [Suspect]
     Active Substance: PREDNISONE
     Indication: Bronchopulmonary aspergillosis
  6. NIRMATRELVIR [Suspect]
     Active Substance: NIRMATRELVIR
     Indication: COVID-19 pneumonia
     Dosage: UNK
     Route: 065
     Dates: start: 2022
  7. NIRMATRELVIR [Suspect]
     Active Substance: NIRMATRELVIR
     Indication: Lower respiratory tract infection viral
  8. REMDESIVIR [Concomitant]
     Active Substance: REMDESIVIR
     Indication: COVID-19
     Dosage: UNK
     Route: 042
     Dates: start: 202203
  9. REMDESIVIR [Concomitant]
     Active Substance: REMDESIVIR
     Indication: Bronchopulmonary aspergillosis
  10. REMDESIVIR [Concomitant]
     Active Substance: REMDESIVIR
     Indication: Organising pneumonia
  11. REMDESIVIR [Concomitant]
     Active Substance: REMDESIVIR
     Indication: Lower respiratory tract infection viral
  12. OXYGEN [Concomitant]
     Active Substance: OXYGEN
     Indication: COVID-19
     Dosage: 2 LITER, 2ND DOSE
     Route: 045
     Dates: start: 2022
  13. OXYGEN [Concomitant]
     Active Substance: OXYGEN
     Indication: Lower respiratory tract infection viral
     Dosage: 4 LITER, 2ND DOSE
     Route: 045
     Dates: start: 2022
  14. OXYGEN [Concomitant]
     Active Substance: OXYGEN
     Dosage: 3 LITRE
     Route: 045
     Dates: start: 2022
  15. OXYGEN [Concomitant]
     Active Substance: OXYGEN
     Dosage: 8 LITRE
     Route: 045
     Dates: start: 202204
  16. OXYGEN [Concomitant]
     Active Substance: OXYGEN
     Dosage: 10 LITRE
     Route: 045
     Dates: start: 202204
  17. OXYGEN [Concomitant]
     Active Substance: OXYGEN
     Dosage: 15 LITRE
     Route: 065
     Dates: start: 202204
  18. SOTROVIMAB [Concomitant]
     Active Substance: SOTROVIMAB
     Indication: COVID-19 pneumonia
     Dosage: 1 DOSAGE FORM, TOTAL
     Route: 065
  19. SOTROVIMAB [Concomitant]
     Active Substance: SOTROVIMAB
     Indication: Lower respiratory tract infection viral
  20. AMBISOME [Concomitant]
     Active Substance: AMPHOTERICIN B
     Indication: Organising pneumonia
     Dosage: 5 MILLIGRAM/SQ. METER
     Route: 065
     Dates: start: 2022
  21. AMBISOME [Concomitant]
     Active Substance: AMPHOTERICIN B
     Indication: Bronchopulmonary aspergillosis

REACTIONS (4)
  - SARS-CoV-2 viraemia [Recovered/Resolved]
  - COVID-19 pneumonia [Recovered/Resolved]
  - Bronchopulmonary aspergillosis [Recovered/Resolved]
  - Abdominal distension [Unknown]

NARRATIVE: CASE EVENT DATE: 20220101
